FAERS Safety Report 7231380-X (Version None)
Quarter: 2011Q1

REPORT INFORMATION
  Report Type: 
  Country: None (occurrence: None)
  Receive Date: 20110118
  Receipt Date: 20110111
  Transmission Date: 20110831
  Serious: Yes (Hospitalization)
  Sender: FDA-Public Use
  Company Number: US-MERCK-1009USA00801

PATIENT
  Age: 75 Year
  Sex: Female

DRUGS (7)
  1. COZAAR [Suspect]
     Indication: HYPERTENSION
     Route: 048
     Dates: start: 19990101, end: 20030101
  2. HYDROCHLOROTHIAZIDE [Concomitant]
     Route: 048
  3. COZAAR [Suspect]
     Route: 048
  4. DIGOXIN [Concomitant]
     Route: 065
  5. COZAAR [Suspect]
     Route: 048
     Dates: start: 20030101
  6. COUMADIN [Concomitant]
     Route: 065
  7. NEURONTIN [Suspect]
     Route: 065

REACTIONS (7)
  - HEADACHE [None]
  - ABASIA [None]
  - SENSATION OF HEAVINESS [None]
  - NECK PAIN [None]
  - DIZZINESS [None]
  - DRUG INTERACTION [None]
  - WRONG TECHNIQUE IN DRUG USAGE PROCESS [None]
